FAERS Safety Report 6287783-3 (Version None)
Quarter: 2009Q3

REPORT INFORMATION
  Report Type: 
  Country: None (occurrence: None)
  Receive Date: 20090729
  Receipt Date: 20071113
  Transmission Date: 20100115
  Serious: Yes (Other)
  Sender: FDA-Public Use
  Company Number: US-ASTRAZENECA-2007UW18077

PATIENT
  Age: 658 Month
  Sex: Male
  Weight: 78 kg

DRUGS (13)
  1. SEROQUEL [Suspect]
     Indication: DEPRESSION
     Route: 048
     Dates: start: 20010101, end: 20020101
  2. SEROQUEL [Suspect]
     Route: 048
     Dates: start: 20020826, end: 20030820
  3. PRAVACHOL [Concomitant]
     Dates: start: 20041213
  4. ZOLOFT [Concomitant]
     Dates: start: 20041213
  5. LITHOBID [Concomitant]
     Dosage: 300 MG ONE TABLET IN MORNING AND 2 AT NIGHT
     Route: 048
     Dates: start: 20030820
  6. SYNTHROID [Concomitant]
     Dosage: 0.05 TO 0.75 MG
     Dates: start: 20030820
  7. DEPAKOTE [Concomitant]
     Dosage: 500 MG, ONE TAB MORNING AND 2 AT NIGHT
     Route: 048
     Dates: start: 20021107
  8. CELEBREX [Concomitant]
     Indication: PAIN
     Dates: start: 20041213
  9. CELEBREX [Concomitant]
     Indication: OSTEOARTHRITIS
     Dates: start: 20041213
  10. ATIVAN [Concomitant]
     Dates: start: 20021004
  11. EFFEXOR [Concomitant]
     Indication: DEPRESSION
     Dates: start: 20020501
  12. EFFEXOR [Concomitant]
     Indication: ANXIETY
     Dates: start: 20020501
  13. TRAZODONE [Concomitant]
     Dates: start: 20030116

REACTIONS (2)
  - NEUROPATHY PERIPHERAL [None]
  - TYPE 2 DIABETES MELLITUS [None]
